FAERS Safety Report 5924882-7 (Version None)
Quarter: 2008Q4

REPORT INFORMATION
  Report Type: 
  Country: None (occurrence: None)
  Receive Date: 20081021
  Receipt Date: 20081014
  Transmission Date: 20090506
  Serious: Yes (Other)
  Sender: FDA-Public Use
  Company Number: GB-JNJFOC-20081003317

PATIENT

DRUGS (1)
  1. RISPERDAL [Suspect]
     Indication: MANIA
     Route: 048

REACTIONS (1)
  - DEPRESSION [None]
